FAERS Safety Report 8856404 (Version 1)
Quarter: 2012Q4

REPORT INFORMATION
  Report Type: Spontaneous
  Country: GB (occurrence: None)
  Receive Date: 20121018
  Receipt Date: 20121018
  Transmission Date: 20130627
  Serious: Yes (Hospitalization)
  Sender: FDA-Public Use
  Company Number: 1449076

PATIENT

DRUGS (2)
  1. PACLITAXEL [Suspect]
     Indication: METASTATIC BREAST CANCER
  2. BEVACIZUMAB [Suspect]
     Indication: METASTATIC BREAST CANCER

REACTIONS (2)
  - Rash [None]
  - Skin infection [None]
